FAERS Safety Report 10153828 (Version 3)
Quarter: 2014Q4

REPORT INFORMATION
  Report Type: Spontaneous
  Country: CH (occurrence: CH)
  Receive Date: 20140506
  Receipt Date: 20141013
  Transmission Date: 20150528
  Serious: Yes (Other)
  Sender: FDA-Public Use
  Company Number: CH-AMGEN-CHESP2014031135

PATIENT
  Age: 56 Year
  Sex: Male
  Weight: 73 kg

DRUGS (3)
  1. PREDNISOLONE. [Concomitant]
     Active Substance: PREDNISOLONE
     Dosage: 5 MG, BID
     Dates: start: 20140110
  2. XGEVA [Suspect]
     Active Substance: DENOSUMAB
     Indication: PROSTATE CANCER METASTATIC
     Dosage: 120 MG, Q4WK
     Route: 058
     Dates: start: 201305, end: 201312
  3. ZOLADEX LA [Concomitant]
     Active Substance: GOSERELIN ACETATE
     Dosage: 10.8 MG, Q3MO
     Route: 058
     Dates: start: 201305

REACTIONS (1)
  - Osteonecrosis of jaw [Recovering/Resolving]

NARRATIVE: CASE EVENT DATE: 20140220
